FAERS Safety Report 11405813 (Version 1)
Quarter: 2015Q3

REPORT INFORMATION
  Report Type: Spontaneous
  Country: US (occurrence: US)
  Receive Date: 20150821
  Receipt Date: 20150821
  Transmission Date: 20151125
  Serious: Yes (Hospitalization)
  Sender: FDA-Public Use
  Company Number: US-ABBVIE-15P-163-1445603-00

PATIENT
  Age: 42 Year
  Sex: Female

DRUGS (1)
  1. LEVOTHYROXINE. [Suspect]
     Active Substance: LEVOTHYROXINE
     Indication: PRODUCT USED FOR UNKNOWN INDICATION
     Dosage: 15 TABLETS
     Route: 048

REACTIONS (3)
  - Suicide attempt [Recovered/Resolved]
  - Chemical poisoning [Recovered/Resolved]
  - Overdose [Recovered/Resolved]
